FAERS Safety Report 7972718-5 (Version None)
Quarter: 2011Q4

REPORT INFORMATION
  Report Type: 
  Country: None (occurrence: None)
  Receive Date: 20111213
  Receipt Date: 20111205
  Transmission Date: 20120403
  Serious: Yes (Hospitalization, Other)
  Sender: FDA-Public Use
  Company Number: AU-ROCHE-1008478

PATIENT
  Sex: Female

DRUGS (6)
  1. LUCENTIS [Suspect]
     Indication: AGE-RELATED MACULAR DEGENERATION
     Route: 050
     Dates: start: 20110616
  2. INDAPAMIDE [Concomitant]
  3. PANAMAX [Concomitant]
  4. ASPIRIN [Concomitant]
  5. MIRTAZAPINE [Concomitant]
  6. TENORMIN [Concomitant]

REACTIONS (1)
  - LOSS OF CONSCIOUSNESS [None]
